FAERS Safety Report 15483076 (Version 1)
Quarter: 2018Q4

REPORT INFORMATION
  Report Type: Spontaneous
  Country: US (occurrence: US)
  Receive Date: 20181010
  Receipt Date: 20181010
  Transmission Date: 20190205
  Serious: No
  Sender: FDA-Public Use
  Company Number: US-BIOCOMPATIBLES UK LTD-2018BTG01669

PATIENT
  Age: 50 Year
  Sex: Female

DRUGS (1)
  1. CROFAB [Suspect]
     Active Substance: CROTALIDAE POLYVALENT IMMUNE FAB (OVINE)
     Indication: SNAKE BITE
     Dosage: UNK
     Route: 051
     Dates: start: 20180425

REACTIONS (21)
  - Panic attack [Unknown]
  - Gait inability [Unknown]
  - Balance disorder [Not Recovered/Not Resolved]
  - Back pain [Unknown]
  - Paraesthesia [Not Recovered/Not Resolved]
  - Blood pressure decreased [Unknown]
  - Nervousness [Not Recovered/Not Resolved]
  - Ocular discomfort [Unknown]
  - Feeling abnormal [Not Recovered/Not Resolved]
  - Cold sweat [Not Recovered/Not Resolved]
  - Visual impairment [Unknown]
  - Tension headache [Not Recovered/Not Resolved]
  - Ear disorder [Unknown]
  - Platelet count decreased [Unknown]
  - Nausea [Not Recovered/Not Resolved]
  - Fatigue [Unknown]
  - Insomnia [Unknown]
  - Inflammation [Recovered/Resolved]
  - Dyspnoea [Unknown]
  - Dizziness [Not Recovered/Not Resolved]
  - Heart rate irregular [Not Recovered/Not Resolved]

NARRATIVE: CASE EVENT DATE: 2018
